FAERS Safety Report 6858230-5 (Version None)
Quarter: 2010Q3

REPORT INFORMATION
  Report Type: 
  Country: None (occurrence: None)
  Receive Date: 20100719
  Receipt Date: 20080403
  Transmission Date: 20110219
  Serious: No
  Sender: FDA-Public Use
  Company Number: US-PFIZER INC-2008012468

PATIENT
  Sex: Male
  Weight: 90.7 kg

DRUGS (5)
  1. CHANTIX [Suspect]
     Indication: SMOKING CESSATION THERAPY
     Route: 048
     Dates: start: 20080101
  2. TIZANIDINE HCL [Concomitant]
  3. CYMBALTA [Concomitant]
  4. LYRICA [Concomitant]
  5. OXYCODONE HCL [Concomitant]

REACTIONS (2)
  - EAR PAIN [None]
  - TINNITUS [None]
